FAERS Safety Report 9484268 (Version 2)
Quarter: 2013Q3

REPORT INFORMATION
  Report Type: Spontaneous
  Country: US (occurrence: US)
  Receive Date: 20130828
  Receipt Date: 20130828
  Transmission Date: 20140515
  Serious: Yes (Hospitalization, Other)
  Sender: FDA-Public Use
  Company Number: US-AMGEN-KDL391446

PATIENT
  Age: 0 None
  Sex: Female

DRUGS (1)
  1. ENBREL [Suspect]
     Dosage: 50 MG, QWK
     Route: 064
     Dates: start: 2006

REACTIONS (3)
  - Jaundice neonatal [Unknown]
  - Feeding disorder neonatal [Unknown]
  - Poor weight gain neonatal [Unknown]
